FAERS Safety Report 16941209 (Version 2)
Quarter: 2019Q4

REPORT INFORMATION
  Report Type: Report from Study
  Country: GT (occurrence: GT)
  Receive Date: 20191021
  Receipt Date: 20191121
  Transmission Date: 20200122
  Serious: Yes (Disabling, Other)
  Sender: FDA-Public Use
  Company Number: GT-SA-2019SA288691

PATIENT
  Age: 69 Year
  Sex: Female

DRUGS (4)
  1. INSULIN GLARGINE [Suspect]
     Active Substance: INSULIN GLARGINE
     Indication: BLOOD GLUCOSE ABNORMAL
     Dosage: 50 IU, QD
     Dates: start: 2014, end: 2017
  2. INSULIN GLARGINE [Suspect]
     Active Substance: INSULIN GLARGINE
     Indication: DIABETES MELLITUS
  3. INSULIN GLARGINE [Suspect]
     Active Substance: INSULIN GLARGINE
     Indication: BLOOD GLUCOSE ABNORMAL
     Dosage: 20 IU, QD
     Dates: start: 2017
  4. INSULIN GLARGINE [Suspect]
     Active Substance: INSULIN GLARGINE
     Indication: DIABETES MELLITUS
     Dosage: 30 IU, QD
     Dates: start: 2017

REACTIONS (10)
  - Diabetes mellitus inadequate control [Recovering/Resolving]
  - Drug ineffective [Unknown]
  - Renal disorder [Not Recovered/Not Resolved]
  - Renal failure [Recovering/Resolving]
  - Urinary tract infection [Recovering/Resolving]
  - Cystocele [Recovering/Resolving]
  - Posture abnormal [Not Recovered/Not Resolved]
  - Syncope [Not Recovered/Not Resolved]
  - Walking disability [Recovering/Resolving]
  - Gait disturbance [Not Recovered/Not Resolved]

NARRATIVE: CASE EVENT DATE: 2017
